FAERS Safety Report 9768457 (Version 2)
Quarter: 2013Q4

REPORT INFORMATION
  Report Type: Spontaneous
  Country: US (occurrence: US)
  Receive Date: 20131217
  Receipt Date: 20131219
  Transmission Date: 20140711
  Serious: No
  Sender: FDA-Public Use
  Company Number: US-GILEAD-2013-0090167

PATIENT
  Sex: Female

DRUGS (3)
  1. LETAIRIS [Suspect]
     Indication: PULMONARY HYPERTENSION
     Dosage: 5 MG, QD
     Dates: start: 20131029
  2. LETAIRIS [Suspect]
     Indication: NEPHROPATHY
  3. ADCIRCA [Concomitant]

REACTIONS (2)
  - Oedema peripheral [Unknown]
  - Fluid retention [Unknown]
